FAERS Safety Report 7116110-4 (Version None)
Quarter: 2010Q4

REPORT INFORMATION
  Report Type: 
  Country: None (occurrence: None)
  Receive Date: 20101122
  Receipt Date: 20101108
  Transmission Date: 20110411
  Serious: Yes (Other)
  Sender: FDA-Public Use
  Company Number: PHHY2010CL75895

PATIENT
  Age: 30 Year
  Sex: Male

DRUGS (1)
  1. TAREG D [Suspect]
     Indication: HYPERTENSION
     Dosage: 160/25 MG (ONE TABLET PER DAY)
     Route: 048

REACTIONS (5)
  - CHILLS [None]
  - CONVULSION [None]
  - DIZZINESS [None]
  - HYPOAESTHESIA [None]
  - PAIN IN EXTREMITY [None]
